FAERS Safety Report 17734416 (Version 1)
Quarter: 2020Q2

REPORT INFORMATION
  Report Type: Other
  Country: CA (occurrence: CA)
  Receive Date: 20200501
  Receipt Date: 20200501
  Transmission Date: 20200714
  Serious: Yes (Hospitalization, Other)
  Sender: FDA-Public Use
  Company Number: CA-PFIZER INC-2020173770

PATIENT
  Age: 19 Year
  Sex: Female

DRUGS (3)
  1. VENLAFAXINE HCL [Suspect]
     Active Substance: VENLAFAXINE HYDROCHLORIDE
     Indication: PERINATAL DEPRESSION
     Dosage: 150 MG, 1X/DAY
  2. ZOPICLONE [Suspect]
     Active Substance: ZOPICLONE
     Indication: INSOMNIA
     Dosage: 7.5 MG
  3. ACETAMINOPHEN. [Suspect]
     Active Substance: ACETAMINOPHEN
     Indication: OVERDOSE
     Dosage: UNK
     Route: 065

REACTIONS (5)
  - Suicide attempt [Recovered/Resolved]
  - Hypomania [Recovered/Resolved]
  - Bipolar II disorder [Recovered/Resolved]
  - Intentional overdose [Recovered/Resolved]
  - Major depression [Recovered/Resolved]
